FAERS Safety Report 8388570-2 (Version None)
Quarter: 2012Q2

REPORT INFORMATION
  Report Type: 
  Country: None (occurrence: None)
  Receive Date: 20120525
  Receipt Date: 20120511
  Transmission Date: 20120825
  Serious: No
  Sender: FDA-Public Use
  Company Number: US-ASTRAZENECA-2012SE30785

PATIENT
  Age: 11 Year
  Sex: Male

DRUGS (4)
  1. PULMICORT FLEXHALER [Suspect]
     Dosage: 90 MCG TWO INHALATIONS TWO TIMES A DAY
     Route: 055
  2. VYVANSE [Concomitant]
  3. INTUNIV [Concomitant]
  4. ALBUTEROL [Concomitant]

REACTIONS (2)
  - DRUG DOSE OMISSION [None]
  - CONDITION AGGRAVATED [None]
